FAERS Safety Report 11885173 (Version 2)
Quarter: 2016Q1

REPORT INFORMATION
  Report Type: Spontaneous
  Country: US (occurrence: US)
  Receive Date: 20160104
  Receipt Date: 20160112
  Transmission Date: 20160526
  Serious: Yes (Hospitalization)
  Sender: FDA-Public Use
  Company Number: US-AUROBINDO-AUR-APL-2015-12036

PATIENT
  Age: 37 Year
  Sex: Female

DRUGS (1)
  1. TRIMETHOPRIM+SULFAMETHOXAZOLE [Suspect]
     Active Substance: SULFAMETHOXAZOLE\TRIMETHOPRIM
     Indication: URINARY TRACT INFECTION
     Route: 065

REACTIONS (9)
  - Skin erosion [Recovered/Resolved]
  - Fixed drug eruption [Recovered/Resolved]
  - Epidermal necrosis [Recovered/Resolved]
  - Rash [Recovered/Resolved]
  - Dermatitis bullous [Recovered/Resolved]
  - Rash erythematous [Recovered/Resolved]
  - Skin hyperpigmentation [Recovered/Resolved]
  - Skin plaque [Recovered/Resolved]
  - Blister [Recovered/Resolved]
